FAERS Safety Report 4558392-9 (Version None)
Quarter: 2005Q1

REPORT INFORMATION
  Report Type: 
  Country: None (occurrence: None)
  Receive Date: 20050121
  Receipt Date: 20041104
  Transmission Date: 20050727
  Serious: Yes (Hospitalization)
  Sender: FDA-Public Use
  Company Number: PHNU2004DE03743

PATIENT
  Age: 33 Year
  Sex: Female
  Weight: 61 kg

DRUGS (9)
  1. URBASON [Concomitant]
     Indication: IMMUNOSUPPRESSION
     Dosage: 10 MG, QD
     Route: 048
  2. IMUREK [Concomitant]
  3. PREDNISOLONE [Concomitant]
     Dates: end: 20021123
  4. BELOC ZOK [Concomitant]
     Dosage: 1 DF, BID
  5. UNAT [Concomitant]
  6. LONOLOX [Concomitant]
  7. CLEXANE                                 /GFR/ [Concomitant]
  8. SANDIMMUNE [Suspect]
     Indication: RENAL TRANSPLANT
     Dosage: 125 MG, BID
     Route: 048
  9. SANDIMMUNE [Suspect]
     Dosage: 175 MG DAILY
     Route: 048
     Dates: start: 20021105, end: 20021121

REACTIONS (11)
  - BRAIN OEDEMA [None]
  - GENERAL PHYSICAL HEALTH DETERIORATION [None]
  - HEADACHE [None]
  - HYPERPARATHYROIDISM TERTIARY [None]
  - HYPERTENSIVE CRISIS [None]
  - LOW TURNOVER OSTEOPATHY [None]
  - MALAISE [None]
  - REGURGITATION OF FOOD [None]
  - SOMNOLENCE [None]
  - UROSEPSIS [None]
  - VOMITING [None]
